FAERS Safety Report 5776907-X (Version None)
Quarter: 2008Q2

REPORT INFORMATION
  Report Type: 
  Country: None (occurrence: None)
  Receive Date: 20080618
  Receipt Date: 20080612
  Transmission Date: 20081010
  Serious: Yes (Hospitalization)
  Sender: FDA-Public Use
  Company Number: A0733679A

PATIENT
  Age: 53 Year
  Sex: Male
  Weight: 98.6 kg

DRUGS (17)
  1. AVANDIA [Suspect]
     Dosage: 8MG PER DAY
     Route: 048
  2. TRICOR [Concomitant]
  3. PRIMIDONE [Concomitant]
  4. IMIPRAMINE [Concomitant]
  5. ZYPREXA [Concomitant]
  6. ASPIRIN [Concomitant]
  7. PROPRANOLOL [Concomitant]
  8. VYTORIN [Concomitant]
  9. PLAVIX [Concomitant]
  10. ALPRAZOLAM [Concomitant]
  11. LISINOPRIL [Concomitant]
  12. PROCANBID [Concomitant]
  13. STARLIX [Concomitant]
  14. ISOSORBIDE MONONITRATE [Concomitant]
  15. NOVOLOG [Concomitant]
  16. ZETIA [Concomitant]
  17. ZOCOR [Concomitant]

REACTIONS (7)
  - ANGINA UNSTABLE [None]
  - ARTERIOSCLEROSIS CORONARY ARTERY [None]
  - ATRIAL FIBRILLATION [None]
  - CEREBROVASCULAR ACCIDENT [None]
  - ISCHAEMIC CARDIOMYOPATHY [None]
  - MYOCARDIAL INFARCTION [None]
  - TRANSIENT ISCHAEMIC ATTACK [None]
